FAERS Safety Report 5082277-5 (Version None)
Quarter: 2006Q3

REPORT INFORMATION
  Report Type: 
  Country: None (occurrence: None)
  Receive Date: 20060814
  Receipt Date: 20060802
  Transmission Date: 20061208
  Serious: Yes (Other)
  Sender: FDA-Public Use
  Company Number: HQWYE044804AUG06

PATIENT
  Age: 69 Year
  Sex: Male
  Weight: 80.9 kg

DRUGS (1)
  1. MYLOTARG [Suspect]
     Indication: ACUTE MYELOID LEUKAEMIA
     Dosage: 18 MG 1X PER 14 DAY, INTRAVENOUS
     Route: 042
     Dates: start: 20040618, end: 20040702

REACTIONS (2)
  - INFUSION SITE HAEMORRHAGE [None]
  - THROMBOCYTOPENIA [None]
